FAERS Safety Report 12284967 (Version 1)
Quarter: 2016Q2

REPORT INFORMATION
  Report Type: Spontaneous
  Country: US (occurrence: US)
  Receive Date: 20160420
  Receipt Date: 20160420
  Transmission Date: 20160815
  Serious: Yes (Hospitalization)
  Sender: FDA-Public Use
  Company Number: US-BEH-2016061333

PATIENT
  Sex: Male
  Weight: 62 kg

DRUGS (20)
  1. DIPHENHYDRAMINE. [Concomitant]
     Active Substance: DIPHENHYDRAMINE
  2. XANAX [Concomitant]
     Active Substance: ALPRAZOLAM
  3. BACTRIM [Concomitant]
     Active Substance: SULFAMETHOXAZOLE\TRIMETHOPRIM
  4. HIZENTRA [Suspect]
     Active Substance: HUMAN IMMUNOGLOBULIN G
     Indication: IMMUNODEFICIENCY COMMON VARIABLE
     Dosage: AS DIRECTED - HIZENTRA 1 GM 5 ML VIAL
     Route: 058
     Dates: start: 20160222
  5. CELEXA [Concomitant]
     Active Substance: CITALOPRAM HYDROBROMIDE
  6. EPIPEN [Concomitant]
     Active Substance: EPINEPHRINE
  7. CYCLOSPORINE. [Concomitant]
     Active Substance: CYCLOSPORINE
  8. FOSAMAX [Concomitant]
     Active Substance: ALENDRONATE SODIUM
  9. NORVASC [Concomitant]
     Active Substance: AMLODIPINE BESYLATE
  10. GLIMEPIRIDE. [Concomitant]
     Active Substance: GLIMEPIRIDE
  11. CELLCEPT [Concomitant]
     Active Substance: MYCOPHENOLATE MOFETIL\MYCOPHENOLATE MOFETIL HYDROCHLORIDE
  12. ACETAMINOPHEN. [Concomitant]
     Active Substance: ACETAMINOPHEN
  13. WELLBUTRIN [Concomitant]
     Active Substance: BUPROPION HYDROCHLORIDE
  14. DOCUSATE [Concomitant]
     Active Substance: DOCUSATE
  15. GABAPENTIN. [Concomitant]
     Active Substance: GABAPENTIN
  16. MAGOX [Concomitant]
  17. TRAMADOL. [Concomitant]
     Active Substance: TRAMADOL
  18. ASPIRIN. [Concomitant]
     Active Substance: ASPIRIN
  19. VITAMIN D [Concomitant]
     Active Substance: CHOLECALCIFEROL
  20. PANTOPRAZOLE [Concomitant]
     Active Substance: PANTOPRAZOLE SODIUM

REACTIONS (1)
  - Spinal operation [Recovered/Resolved]
